FAERS Safety Report 4724792-7 (Version None)
Quarter: 2005Q3

REPORT INFORMATION
  Report Type: 
  Country: None (occurrence: None)
  Receive Date: 20050726
  Receipt Date: 20050713
  Transmission Date: 20060218
  Serious: Yes (Death, Hospitalization)
  Sender: FDA-Public Use
  Company Number: 200512388FR

PATIENT
  Age: 72 Year
  Sex: Male

DRUGS (4)
  1. RILUTEK [Suspect]
     Indication: AMYOTROPHIC LATERAL SCLEROSIS
     Route: 048
  2. KEAL [Suspect]
     Route: 048
  3. TOCO 500 [Suspect]
     Route: 048
  4. PREVISCAN [Suspect]
     Route: 048

REACTIONS (9)
  - BRONCHIAL OBSTRUCTION [None]
  - CIRCULATORY COLLAPSE [None]
  - CYANOSIS [None]
  - LACTIC ACIDOSIS [None]
  - METABOLIC ACIDOSIS [None]
  - RESPIRATORY DISTRESS [None]
  - SINUSITIS [None]
  - SOMNOLENCE [None]
  - TACHYPNOEA [None]
